FAERS Safety Report 13795427 (Version 2)
Quarter: 2017Q3

REPORT INFORMATION
  Report Type: Spontaneous
  Country: JP (occurrence: JP)
  Receive Date: 20170726
  Receipt Date: 20170908
  Transmission Date: 20171127
  Serious: Yes (Hospitalization, Other)
  Sender: FDA-Public Use
  Company Number: JP-SA-2017SA133994

PATIENT
  Age: 53 Year
  Sex: Male

DRUGS (4)
  1. CHLORPHENIRAMINE MALEATE. [Suspect]
     Active Substance: CHLORPHENIRAMINE MALEATE
     Indication: ECZEMA
     Route: 065
  2. HOMOCHLORCYCLIZINE HYDROCHLORIDE [Suspect]
     Active Substance: HOMOCHLORCYCLIZINE DIHYDROCHLORIDE
     Indication: ECZEMA
     Route: 065
  3. ALLEGRA [Suspect]
     Active Substance: FEXOFENADINE HYDROCHLORIDE
     Indication: ECZEMA
     Route: 048
  4. EPINASTINE HYDROCHLORIDE. [Suspect]
     Active Substance: EPINASTINE HYDROCHLORIDE
     Indication: ECZEMA
     Route: 065

REACTIONS (1)
  - Electrocardiogram ST segment elevation [Recovered/Resolved]
